FAERS Safety Report 9713370 (Version 1)
Quarter: 2013Q4

REPORT INFORMATION
  Report Type: Spontaneous
  Country: US (occurrence: US)
  Receive Date: 20131126
  Receipt Date: 20131126
  Transmission Date: 20140711
  Serious: Yes (Other)
  Sender: FDA-Public Use
  Company Number: US-FRI-1000051581

PATIENT
  Age: 59 Year
  Sex: Male
  Weight: 90.7 kg

DRUGS (8)
  1. VIIBRYD [Suspect]
     Indication: DEPRESSION
     Dosage: 10 MG
     Route: 048
     Dates: start: 2013, end: 2013
  2. VIIBRYD [Suspect]
     Dosage: 20 MG
     Route: 048
     Dates: start: 2013, end: 2013
  3. VIIBRYD [Suspect]
     Indication: DEPRESSION
     Dosage: 40 MG
     Route: 048
     Dates: start: 2013
  4. VIIBRYD [Suspect]
     Dosage: 20 MG
  5. SUSTIVA [Suspect]
  6. VITAMINS NOS [Concomitant]
  7. MINERALS NOS [Concomitant]
  8. NUTRIENTS NOS [Concomitant]

REACTIONS (5)
  - Diarrhoea [Not Recovered/Not Resolved]
  - Decreased appetite [Unknown]
  - Nausea [Unknown]
  - Haemorrhoids [Unknown]
  - Mania [Recovered/Resolved]
